FAERS Safety Report 7991827-8 (Version None)
Quarter: 2011Q4

REPORT INFORMATION
  Report Type: 
  Country: None (occurrence: None)
  Receive Date: 20111219
  Receipt Date: 20111214
  Transmission Date: 20120403
  Serious: Yes (Other)
  Sender: FDA-Public Use
  Company Number: US-PFIZER INC-2011305534

PATIENT
  Age: 59 Year
  Sex: Male

DRUGS (2)
  1. ATORVASTATIN CALCIUM [Suspect]
     Dosage: 40 MG, UNK
  2. ATORVASTATIN CALCIUM [Suspect]
     Dosage: UNK

REACTIONS (1)
  - DYSPNOEA [None]
